FAERS Safety Report 15380167 (Version 1)
Quarter: 2018Q3

REPORT INFORMATION
  Report Type: Spontaneous
  Country: US (occurrence: US)
  Receive Date: 20180913
  Receipt Date: 20180913
  Transmission Date: 20181010
  Serious: No
  Sender: FDA-Public Use
  Company Number: US-ASTELLAS-2018US018826

PATIENT
  Age: 68 Year
  Sex: Male

DRUGS (1)
  1. XTANDI [Suspect]
     Active Substance: ENZALUTAMIDE
     Indication: PROSTATE CANCER
     Route: 065
     Dates: start: 20180301

REACTIONS (6)
  - Hot flush [Not Recovered/Not Resolved]
  - Fatigue [Recovering/Resolving]
  - Chills [Recovered/Resolved]
  - Prostatic pain [Unknown]
  - Asthenia [Recovering/Resolving]
  - Prostatic pain [Not Recovered/Not Resolved]

NARRATIVE: CASE EVENT DATE: 20180301
